FAERS Safety Report 8101230-8 (Version None)
Quarter: 2012Q1

REPORT INFORMATION
  Report Type: 
  Country: None (occurrence: None)
  Receive Date: 20120129
  Receipt Date: 20110919
  Transmission Date: 20120608
  Serious: No
  Sender: FDA-Public Use
  Company Number: US-ABBOTT-11P-163-0856152-00

PATIENT
  Age: 64 Year
  Sex: Female

DRUGS (5)
  1. LEVOXYL [Concomitant]
     Indication: HYPOTHYROIDISM
     Dosage: DAILY
  2. NAPROSYN [Concomitant]
     Indication: PRODUCT USED FOR UNKNOWN INDICATION
  3. HUMIRA [Suspect]
     Indication: PSORIASIS
     Dates: start: 20110501, end: 20110822
  4. SORIATINE [Concomitant]
     Indication: PSORIASIS
     Dates: start: 20101101
  5. VITAMIN TAB [Concomitant]
     Indication: PRODUCT USED FOR UNKNOWN INDICATION

REACTIONS (1)
  - PSORIASIS [None]
